FAERS Safety Report 6241538-4 (Version None)
Quarter: 2009Q2

REPORT INFORMATION
  Report Type: 
  Country: None (occurrence: None)
  Receive Date: 20090623
  Receipt Date: 20040202
  Transmission Date: 20091009
  Serious: Yes (Hospitalization)
  Sender: FDA-Public Use
  Company Number: DE-ROCHE-357718

PATIENT
  Sex: Female

DRUGS (28)
  1. DACLIZUMAB [Suspect]
     Route: 042
     Dates: start: 20031104, end: 20031104
  2. DACLIZUMAB [Suspect]
     Route: 042
     Dates: start: 20031118, end: 20031229
  3. MYCOPHENOLATE MOFETIL [Suspect]
     Route: 048
     Dates: start: 20031104, end: 20031104
  4. MYCOPHENOLATE MOFETIL [Suspect]
     Route: 048
     Dates: start: 20031105, end: 20040202
  5. MYCOPHENOLATE MOFETIL [Suspect]
     Route: 048
     Dates: start: 20040301
  6. SIROLIMUS [Suspect]
     Route: 048
     Dates: start: 20031104
  7. SIROLIMUS [Suspect]
     Route: 048
     Dates: start: 20031107, end: 20040202
  8. TACROLIMUS [Suspect]
     Dosage: DRUG: PROGRAF
     Route: 048
     Dates: start: 20040210
  9. SOLU-DECORTIN [Suspect]
     Route: 042
     Dates: start: 20031104
  10. SOLU-DECORTIN [Suspect]
     Route: 042
     Dates: start: 20031105, end: 20031106
  11. DECORTIN H [Suspect]
     Route: 048
     Dates: start: 20031106
  12. DECORTIN H [Suspect]
     Route: 048
     Dates: start: 20031119
  13. DECORTIN H [Suspect]
     Route: 048
     Dates: start: 20031203
  14. DECORTIN H [Suspect]
     Route: 048
     Dates: start: 20040112, end: 20040202
  15. DECORTIN H [Suspect]
     Route: 048
     Dates: start: 20040210
  16. HYDROCORTISON [Suspect]
     Route: 042
     Dates: start: 20040202
  17. HYDROCORTISON [Suspect]
     Route: 042
     Dates: start: 20040205, end: 20040210
  18. AMPHOTERICIN B [Concomitant]
     Route: 060
     Dates: start: 20031105, end: 20040112
  19. CONCOR 5 [Concomitant]
     Route: 048
     Dates: start: 20031107
  20. COTRIM [Concomitant]
     Route: 048
     Dates: start: 20031107, end: 20040107
  21. CYMEVEN [Concomitant]
     Route: 042
     Dates: start: 20031104, end: 20031107
  22. CYMEVEN [Concomitant]
     Route: 048
     Dates: start: 20031114, end: 20040106
  23. NORVASC [Concomitant]
     Route: 048
     Dates: start: 20031106
  24. ROCEPHIN [Concomitant]
     Route: 042
     Dates: start: 20031104, end: 20031106
  25. SORTIS [Concomitant]
     Route: 048
     Dates: start: 20031110
  26. VALCYTE [Concomitant]
     Route: 048
     Dates: start: 20040106, end: 20040202
  27. AUGMENTIN '125' [Concomitant]
     Route: 048
     Dates: start: 20040202, end: 20040301
  28. DIFLUCAN [Concomitant]
     Route: 048
     Dates: start: 20040202, end: 20040214

REACTIONS (2)
  - LEUKOPENIA [None]
  - STOMATITIS NECROTISING [None]
